FAERS Safety Report 8126200-5 (Version None)
Quarter: 2012Q1

REPORT INFORMATION
  Report Type: 
  Country: None (occurrence: None)
  Receive Date: 20120209
  Receipt Date: 20120201
  Transmission Date: 20120608
  Serious: Yes (Other)
  Sender: FDA-Public Use
  Company Number: US-NOVOPROD-344150

PATIENT
  Sex: Male

DRUGS (4)
  1. ALTACE [Concomitant]
     Dosage: 20 MG, QD
  2. METFORMIN HCL [Concomitant]
     Indication: TYPE 2 DIABETES MELLITUS
     Dosage: UNKNOWN
     Route: 048
  3. VICTOZA [Suspect]
     Indication: TYPE 2 DIABETES MELLITUS
     Dosage: 1.8 MG, QD
     Route: 058
     Dates: start: 20110101, end: 20120201
  4. ALTACE [Concomitant]
     Indication: HYPERTENSION
     Dosage: 10 MG, QD
     Route: 065

REACTIONS (3)
  - CEREBROVASCULAR ACCIDENT [None]
  - BLOOD GLUCOSE INCREASED [None]
  - HYPERTENSION [None]
